FAERS Safety Report 20504472 (Version 1)
Quarter: 2022Q1

REPORT INFORMATION
  Report Type: Spontaneous
  Country: CM (occurrence: CM)
  Receive Date: 20220223
  Receipt Date: 20220223
  Transmission Date: 20220423
  Serious: Yes (Other)
  Sender: FDA-Public Use
  Company Number: CM-BAYER-2022A025938

PATIENT
  Age: 38 Year
  Sex: Female

DRUGS (3)
  1. XARELTO [Suspect]
     Active Substance: RIVAROXABAN
     Indication: Product used for unknown indication
     Dosage: 15 MG, BID
     Route: 048
  2. BONCIPRO [Concomitant]
     Dosage: 750 MG, BID
  3. ACETAMINOPHEN\CODEINE PHOSPHATE [Concomitant]
     Active Substance: ACETAMINOPHEN\CODEINE PHOSPHATE
     Dosage: 300/25 X2

REACTIONS (5)
  - Cerebral venous thrombosis [Unknown]
  - Heavy menstrual bleeding [Unknown]
  - Pain [Unknown]
  - Arthralgia [Unknown]
  - Abdominal pain lower [Unknown]
